FAERS Safety Report 5454953-3 (Version None)
Quarter: 2007Q3

REPORT INFORMATION
  Report Type: 
  Country: None (occurrence: None)
  Receive Date: 20070917
  Receipt Date: 20070905
  Transmission Date: 20080115
  Serious: Yes (Other)
  Sender: FDA-Public Use
  Company Number: US-PFIZER INC-2007074888

PATIENT
  Sex: Female

DRUGS (8)
  1. CHANTIX [Suspect]
     Indication: EX-SMOKER
  2. SERETIDE MITE [Suspect]
     Indication: CHRONIC OBSTRUCTIVE PULMONARY DISEASE
     Route: 055
  3. SPIRIVA [Concomitant]
     Indication: CHRONIC OBSTRUCTIVE PULMONARY DISEASE
  4. ALL OTHER THERAPEUTIC PRODUCTS [Concomitant]
  5. TUSSIN DM [Concomitant]
  6. NEXIUM [Concomitant]
  7. PROVIGIL [Concomitant]
  8. CLONAZEPAM [Concomitant]

REACTIONS (8)
  - ARTHRALGIA [None]
  - COLONIC POLYP [None]
  - FUNGAL INFECTION [None]
  - HEADACHE [None]
  - MUSCULOSKELETAL DISORDER [None]
  - MUSCULOSKELETAL PAIN [None]
  - MYALGIA [None]
  - POLYP [None]
